FAERS Safety Report 14200984 (Version 2)
Quarter: 2017Q4

REPORT INFORMATION
  Report Type: Spontaneous
  Country: JP (occurrence: JP)
  Receive Date: 20171117
  Receipt Date: 20171211
  Transmission Date: 20180321
  Serious: Yes (Hospitalization, Disabling)
  Sender: FDA-Public Use
  Company Number: JP-PURDUE-GBR-2017-0050736

PATIENT
  Age: 72 Year
  Sex: Female

DRUGS (9)
  1. PREGABALIN. [Concomitant]
     Active Substance: PREGABALIN
     Dosage: 50 MG, DAILY
  2. LOXOPROFEN [Concomitant]
     Active Substance: LOXOPROFEN
     Indication: SPINAL COMPRESSION FRACTURE
  3. LOXOPROFEN [Concomitant]
     Active Substance: LOXOPROFEN
     Indication: BACK PAIN
     Dosage: 180 MG, DAILY
     Route: 048
  4. OXYCONTIN [Suspect]
     Active Substance: OXYCODONE HYDROCHLORIDE
     Dosage: 40 MG, DAILY
     Route: 048
  5. PREGABALIN. [Concomitant]
     Active Substance: PREGABALIN
     Indication: BACK PAIN
     Dosage: 75 MG, UNK
  6. OXYCONTIN [Suspect]
     Active Substance: OXYCODONE HYDROCHLORIDE
     Indication: SPINAL COMPRESSION FRACTURE
     Dosage: 20 MG, DAILY
     Route: 048
  7. PREGABALIN. [Concomitant]
     Active Substance: PREGABALIN
     Indication: SPINAL COMPRESSION FRACTURE
     Dosage: 100 MG, DAILY
  8. OXYCONTIN [Suspect]
     Active Substance: OXYCODONE HYDROCHLORIDE
     Indication: BACK PAIN
     Dosage: 30 MG, DAILY
     Route: 048
  9. OXYCONTIN [Suspect]
     Active Substance: OXYCODONE HYDROCHLORIDE
     Dosage: 30 MG, DAILY
     Route: 048

REACTIONS (5)
  - Drug withdrawal syndrome [Recovered/Resolved]
  - Overdose [Recovered/Resolved]
  - Altered state of consciousness [Recovered/Resolved]
  - Postrenal failure [Recovered/Resolved]
  - Urinary retention [Recovered/Resolved]
